FAERS Safety Report 5027741-X (Version None)
Quarter: 2006Q2

REPORT INFORMATION
  Report Type: 
  Country: None (occurrence: None)
  Receive Date: 20060616
  Receipt Date: 20060606
  Transmission Date: 20061013
  Serious: Yes (Hospitalization)
  Sender: FDA-Public Use
  Company Number: IT-JNJFOC-20060601960

PATIENT
  Age: 58 Year
  Sex: Female

DRUGS (5)
  1. REMICADE [Suspect]
     Indication: RHEUMATOID ARTHRITIS
     Route: 042
  2. METHOTREXATE [Suspect]
  3. METHOTREXATE [Suspect]
     Indication: RHEUMATOID ARTHRITIS
  4. CORTISONICS [Concomitant]
     Indication: RHEUMATOID ARTHRITIS
  5. NSAIDS [Concomitant]
     Indication: RHEUMATOID ARTHRITIS

REACTIONS (4)
  - BONE MARROW TOXICITY [None]
  - DRUG INTERACTION [None]
  - LEUKOPENIA [None]
  - REFRACTORY ANAEMIA WITH AN EXCESS OF BLASTS [None]
